FAERS Safety Report 10010304 (Version 3)
Quarter: 2014Q2

REPORT INFORMATION
  Report Type: Spontaneous
  Country: JP (occurrence: JP)
  Receive Date: 20140314
  Receipt Date: 20140401
  Transmission Date: 20141212
  Serious: Yes (Other)
  Sender: FDA-Public Use
  Company Number: JP-JNJFOC-20140207967

PATIENT
  Age: 64 Year
  Sex: Male

DRUGS (8)
  1. FLORID [Suspect]
     Indication: PRODUCT USED FOR UNKNOWN INDICATION
     Route: 049
  2. FLORID [Suspect]
     Indication: PRODUCT USED FOR UNKNOWN INDICATION
     Route: 049
  3. FLORID [Suspect]
     Indication: PRODUCT USED FOR UNKNOWN INDICATION
     Route: 049
  4. FLORID [Suspect]
     Indication: PRODUCT USED FOR UNKNOWN INDICATION
     Route: 049
  5. NEORAL [Interacting]
     Indication: INTERSTITIAL LUNG DISEASE
     Route: 065
  6. NEORAL [Interacting]
     Indication: INTERSTITIAL LUNG DISEASE
     Route: 065
  7. PREDNISOLONE [Concomitant]
     Indication: PRODUCT USED FOR UNKNOWN INDICATION
     Route: 065
  8. PREDNISOLONE [Concomitant]
     Indication: PRODUCT USED FOR UNKNOWN INDICATION
     Route: 065

REACTIONS (2)
  - Immunosuppressant drug level increased [Unknown]
  - Drug interaction [Unknown]
